FAERS Safety Report 6309961-7 (Version None)
Quarter: 2009Q3

REPORT INFORMATION
  Report Type: 
  Country: None (occurrence: None)
  Receive Date: 20090814
  Receipt Date: 20090805
  Transmission Date: 20100115
  Serious: Yes (Hospitalization)
  Sender: FDA-Public Use
  Company Number: US-ABBOTT-09P-163-0589673-00

PATIENT
  Sex: Male
  Weight: 90.8 kg

DRUGS (6)
  1. LUPRON DEPOT [Suspect]
     Indication: PROSTATE CANCER
     Route: 050
     Dates: start: 19960101, end: 19960501
  2. LUPRON DEPOT [Suspect]
     Dates: start: 20010101
  3. LUPRON DEPOT [Suspect]
     Route: 050
     Dates: start: 20090301
  4. CASODEX [Concomitant]
     Indication: PROSTATE CANCER
     Dates: start: 19960101, end: 19960501
  5. CASODEX [Concomitant]
     Dates: start: 20010101
  6. CASODEX [Concomitant]
     Dates: start: 20090101

REACTIONS (5)
  - ALOPECIA [None]
  - HAEMORRHAGE [None]
  - NEOPLASM MALIGNANT [None]
  - PROCEDURAL COMPLICATION [None]
  - PROSTATIC SPECIFIC ANTIGEN INCREASED [None]
